FAERS Safety Report 5044550-6 (Version None)
Quarter: 2006Q2

REPORT INFORMATION
  Report Type: 
  Country: None (occurrence: None)
  Receive Date: 20060629
  Receipt Date: 20060619
  Transmission Date: 20061013
  Serious: Yes (Other)
  Sender: FDA-Public Use
  Company Number: 2006063602

PATIENT
  Age: 22 Year
  Sex: Female

DRUGS (2)
  1. DEPO-PROVERA [Suspect]
     Indication: CONTRACEPTION
     Dosage: SEE IMAGE
     Route: 030
     Dates: start: 20051201, end: 20051201
  2. DEPO-PROVERA [Suspect]
     Indication: CONTRACEPTION
     Dosage: SEE IMAGE
     Route: 030
     Dates: start: 20060201, end: 20060201

REACTIONS (17)
  - AFFECTIVE DISORDER [None]
  - ALOPECIA [None]
  - AMENORRHOEA [None]
  - BLOOD PROLACTIN INCREASED [None]
  - BREAST DISCHARGE [None]
  - DEPRESSION [None]
  - DIZZINESS [None]
  - GASTRIC DISORDER [None]
  - HAIR DISORDER [None]
  - HEADACHE [None]
  - HYPOTENSION [None]
  - LOSS OF LIBIDO [None]
  - NAUSEA [None]
  - OILY SKIN [None]
  - PITUITARY TUMOUR [None]
  - SUICIDE ATTEMPT [None]
  - TACHYCARDIA [None]
